FAERS Safety Report 8933302 (Version 1)
Quarter: 2012Q4

REPORT INFORMATION
  Report Type: 
  Country: US (occurrence: US)
  Receive Date: 20121129
  Receipt Date: 20121129
  Transmission Date: 20130627
  Serious: No
  Sender: FDA-Public Use
  Company Number: US-009507513-1211USA011446

PATIENT
  Age: 71 Year
  Sex: Female

DRUGS (3)
  1. PROVENTIL [Suspect]
     Indication: UPPER RESPIRATORY TRACT INFECTION
     Dosage: 2 puffs every 4 hours
     Route: 055
     Dates: start: 20121022
  2. XOPENEX [Concomitant]
  3. SINGULAIR [Concomitant]
     Dosage: UNK

REACTIONS (3)
  - Increased upper airway secretion [Not Recovered/Not Resolved]
  - Hyperacusis [Not Recovered/Not Resolved]
  - Cough [Not Recovered/Not Resolved]
